FAERS Safety Report 21482270 (Version 1)
Quarter: 2022Q4

REPORT INFORMATION
  Report Type: Spontaneous
  Country: JP (occurrence: JP)
  Receive Date: 20221020
  Receipt Date: 20221020
  Transmission Date: 20230112
  Serious: Yes (Hospitalization, Other)
  Sender: FDA-Public Use
  Company Number: JP-ALS-000798

PATIENT
  Age: 82 Year
  Sex: Male

DRUGS (4)
  1. METFORMIN [Suspect]
     Active Substance: METFORMIN HYDROCHLORIDE
     Indication: Product used for unknown indication
     Dosage: 2,000 MG/DAY
     Route: 048
  2. SITAGLIPTIN [Concomitant]
     Active Substance: SITAGLIPTIN
     Indication: Product used for unknown indication
     Dosage: 50 MG/DAY
     Route: 065
  3. GLICLAZIDE [Concomitant]
     Active Substance: GLICLAZIDE
     Indication: Product used for unknown indication
     Dosage: 20 MG/DAY
     Route: 065
  4. METFORMIN [Suspect]
     Active Substance: METFORMIN HYDROCHLORIDE
     Indication: Product used for unknown indication
     Dosage: 1,000 MG/DAY
     Route: 048

REACTIONS (15)
  - Cardiovascular disorder [Recovered/Resolved]
  - Renal impairment [Recovering/Resolving]
  - Hypovolaemic shock [Unknown]
  - Lactic acidosis [Recovering/Resolving]
  - Continuous haemodiafiltration [Unknown]
  - Pulmonary congestion [Recovered/Resolved]
  - Pleural effusion [Recovering/Resolving]
  - Brain natriuretic peptide increased [Recovering/Resolving]
  - General physical health deterioration [Unknown]
  - Vitamin B1 deficiency [Unknown]
  - Eating disorder [Unknown]
  - Vein collapse [Unknown]
  - Ejection fraction decreased [Recovering/Resolving]
  - Cardiac dysfunction [Recovered/Resolved]
  - Hypokinesia [Unknown]
